FAERS Safety Report 6053264-5 (Version None)
Quarter: 2009Q1

REPORT INFORMATION
  Report Type: 
  Country: None (occurrence: None)
  Receive Date: 20090127
  Receipt Date: 20090119
  Transmission Date: 20090719
  Serious: Yes (Hospitalization)
  Sender: FDA-Public Use
  Company Number: US-BIOGENIDEC-2009BI001346

PATIENT
  Age: 45 Year
  Sex: Female

DRUGS (14)
  1. TYSABRI [Suspect]
     Indication: MULTIPLE SCLEROSIS
     Route: 042
     Dates: start: 20070214, end: 20080911
  2. BACLOFEN [Concomitant]
     Route: 037
  3. CALCIUM [Concomitant]
  4. CARBAMAZEPINE [Concomitant]
     Route: 048
  5. DITROPAN [Concomitant]
  6. MINOCYCLINE HCL [Concomitant]
     Indication: ACNE
  7. MULTI-VITAMIN [Concomitant]
  8. NEURONTIN [Concomitant]
  9. PROVIGIL [Concomitant]
  10. RANITIDINE [Concomitant]
  11. TRETINOIN [Concomitant]
  12. ZOLOFT [Concomitant]
     Route: 048
  13. TYLENOL [Concomitant]
  14. FOSAMAX [Concomitant]
     Indication: OSTEOPOROSIS

REACTIONS (2)
  - BREAST CANCER STAGE I [None]
  - PNEUMONIA [None]
